FAERS Safety Report 9935051 (Version 4)
Quarter: 2014Q2

REPORT INFORMATION
  Report Type: Spontaneous
  Country: US (occurrence: US)
  Receive Date: 20140228
  Receipt Date: 20140514
  Transmission Date: 20141212
  Serious: Yes (Other)
  Sender: FDA-Public Use
  Company Number: US-PFIZER INC-2014057144

PATIENT
  Age: 58 Year
  Sex: Female
  Weight: 70.3 kg

DRUGS (5)
  1. LYRICA [Suspect]
     Indication: FIBROMYALGIA
     Dosage: 150 MG, 3X/DAY
     Dates: start: 2007
  2. LYRICA [Suspect]
     Dosage: 150 MG, 3X/DAY
     Dates: start: 2013
  3. METOPROLOL TARTRATE [Concomitant]
     Indication: HYPERTENSION
     Dosage: 100 MG, 2X/DAY
  4. DIAZEPAM [Concomitant]
     Indication: ANXIETY
     Dosage: 10 MG, 4X/DAY
  5. IBUPROFEN [Concomitant]
     Indication: INFLAMMATION
     Dosage: 800 MG, 3X/DAY

REACTIONS (3)
  - Lower limb fracture [Recovering/Resolving]
  - Asthenia [Unknown]
  - Malaise [Unknown]
